FAERS Safety Report 8847847 (Version 2)
Quarter: 2013Q3

REPORT INFORMATION
  Report Type: Spontaneous
  Country: US (occurrence: US)
  Receive Date: 20121018
  Receipt Date: 20130809
  Transmission Date: 20140515
  Serious: Yes (Hospitalization)
  Sender: FDA-Public Use
  Company Number: US-ABBOTT-12P-163-0994106-00

PATIENT
  Age: 79 Year
  Sex: Female
  Weight: 58.11 kg

DRUGS (8)
  1. VICODIN [Suspect]
     Indication: PAIN
  2. TOVIAZ [Suspect]
     Indication: HYPERTONIC BLADDER
     Dosage: 4MG DAILY AT NIGHT
     Route: 048
  3. TOVIAZ [Suspect]
     Dosage: 8MG AT NIGHT
     Route: 048
  4. NEURONTIN [Concomitant]
     Indication: NEUROPATHY PERIPHERAL
  5. AMITRIPYLINE [Concomitant]
     Indication: NEUROPATHY PERIPHERAL
     Dosage: 50MG DAILY
  6. RECLAST [Concomitant]
     Indication: OSTEOPOROSIS
     Dosage: EVERY YEAR
  7. UNSPECIFIED MEDICATION [Concomitant]
     Indication: CARDIAC DISORDER
  8. UNSPECIFIED MEDICATION [Concomitant]
     Indication: BLOOD PRESSURE ABNORMAL

REACTIONS (4)
  - Upper limb fracture [Unknown]
  - Dry mouth [Unknown]
  - Fall [Unknown]
  - Constipation [Unknown]
